FAERS Safety Report 19239596 (Version 1)
Quarter: 2021Q2

REPORT INFORMATION
  Report Type: Spontaneous
  Country: US (occurrence: US)
  Receive Date: 20210510
  Receipt Date: 20210510
  Transmission Date: 20210717
  Serious: Yes (Other)
  Sender: FDA-Public Use
  Company Number: US-CELGENEUS-USA-20210501078

PATIENT
  Sex: Female
  Weight: 57.2 kg

DRUGS (2)
  1. REVLIMID [Suspect]
     Active Substance: LENALIDOMIDE
     Indication: PLASMA CELL MYELOMA
     Dosage: 10 MILLIGRAM
     Route: 048
     Dates: start: 201905
  2. REVLIMID [Suspect]
     Active Substance: LENALIDOMIDE
     Dosage: 7.5 MILLIGRAM
     Route: 048
     Dates: start: 201908

REACTIONS (5)
  - Constipation [Not Recovered/Not Resolved]
  - Neck pain [Not Recovered/Not Resolved]
  - Arthralgia [Not Recovered/Not Resolved]
  - Neuropathy peripheral [Not Recovered/Not Resolved]
  - Dizziness [Not Recovered/Not Resolved]
